FAERS Safety Report 4373359-1 (Version None)
Quarter: 2004Q2

REPORT INFORMATION
  Report Type: 
  Country: None (occurrence: None)
  Receive Date: 20040603
  Receipt Date: 20040528
  Transmission Date: 20050107
  Serious: Yes (Other)
  Sender: FDA-Public Use
  Company Number: NSADSS2002009989

PATIENT
  Age: 36 Year
  Sex: Male
  Weight: 74.3899 kg

DRUGS (1)
  1. CISAPRIDE (CISAPRIDE) TABLETS [Suspect]
     Indication: IMPAIRED GASTRIC EMPTYING
     Dosage: 10 MG, 4 IN 1 DAY, ORAL
     Route: 048
     Dates: start: 20011130, end: 20020321

REACTIONS (2)
  - ELECTROCARDIOGRAM QT PROLONGED [None]
  - LABORATORY TEST INTERFERENCE [None]
